FAERS Safety Report 10694260 (Version 2)
Quarter: 2015Q1

REPORT INFORMATION
  Report Type: Spontaneous
  Country: US (occurrence: US)
  Receive Date: 20150106
  Receipt Date: 20150106
  Transmission Date: 20150721
  Serious: No
  Sender: FDA-Public Use
  Company Number: US-BAUSCH-SYM-2013-11079

PATIENT
  Age: 40 Year
  Sex: Female

DRUGS (2)
  1. XENAZINE [Suspect]
     Active Substance: TETRABENAZINE
     Dosage: 12.5 MG IN THE AM AND 6.25 MG IN THE PM
     Route: 048
     Dates: start: 201312
  2. XENAZINE [Suspect]
     Active Substance: TETRABENAZINE
     Indication: HUNTINGTON^S DISEASE
     Route: 048
     Dates: start: 20130923, end: 20130926

REACTIONS (4)
  - Fatigue [Unknown]
  - Gait disturbance [Not Recovered/Not Resolved]
  - Ligament sprain [Unknown]
  - Movement disorder [Recovered/Resolved]

NARRATIVE: CASE EVENT DATE: 20130924
